FAERS Safety Report 10229790 (Version 1)
Quarter: 2014Q2

REPORT INFORMATION
  Report Type: Spontaneous
  Country: CN (occurrence: CN)
  Receive Date: 20140611
  Receipt Date: 20140611
  Transmission Date: 20141212
  Serious: Yes (Hospitalization)
  Sender: FDA-Public Use
  Company Number: CN-BAYER-2014-080297

PATIENT
  Sex: Male
  Weight: 70 kg

DRUGS (3)
  1. NEXAVAR [Suspect]
     Indication: METASTATIC RENAL CELL CARCINOMA
     Dosage: 400 MG, BID
     Dates: start: 20140321, end: 20140520
  2. NEXAVAR [Suspect]
     Indication: METASTASES TO LUNG
  3. NEXAVAR [Suspect]
     Indication: METASTASES TO LIVER

REACTIONS (6)
  - Liver injury [Recovering/Resolving]
  - Blood bilirubin increased [Recovering/Resolving]
  - Aspartate aminotransferase increased [Recovering/Resolving]
  - Alanine aminotransferase increased [Recovering/Resolving]
  - Coagulation time abnormal [Recovering/Resolving]
  - Platelet disorder [Recovering/Resolving]
